FAERS Safety Report 6921783-2 (Version None)
Quarter: 2010Q3

REPORT INFORMATION
  Report Type: 
  Country: None (occurrence: None)
  Receive Date: 20100812
  Receipt Date: 20100806
  Transmission Date: 20110219
  Serious: Yes (Other)
  Sender: FDA-Public Use
  Company Number: BR-BRISTOL-MYERS SQUIBB COMPANY-15166499

PATIENT
  Age: 45 Year
  Sex: Female
  Weight: 72 kg

DRUGS (8)
  1. TAXOL INJ 300 MG/50 ML [Suspect]
     Indication: BREAST CANCER
     Dosage: ROA : ENDOVENOUS
     Route: 042
     Dates: start: 20091027
  2. XELODA [Suspect]
     Dosage: INTERRUPTED ON 07SEP2009
     Dates: start: 20090421
  3. PREDNISONE TAB [Concomitant]
  4. CHLOROQUINE PHOSPHATE [Concomitant]
  5. ATENOLOL [Concomitant]
  6. ALENDRONATE SODIUM [Concomitant]
  7. CALCIUM CARBONATE [Concomitant]
  8. VITAMIN D [Concomitant]

REACTIONS (2)
  - NAIL BED INFECTION [None]
  - PALMAR-PLANTAR ERYTHRODYSAESTHESIA SYNDROME [None]
